FAERS Safety Report 16818180 (Version 1)
Quarter: 2019Q3

REPORT INFORMATION
  Report Type: Spontaneous
  Country: US (occurrence: US)
  Receive Date: 20190917
  Receipt Date: 20190917
  Transmission Date: 20191005
  Serious: No
  Sender: FDA-Public Use
  Company Number: US-PERRIGO-19US005777

PATIENT
  Age: 11 Year
  Sex: Female
  Weight: 35.83 kg

DRUGS (2)
  1. ZYRTEC [Concomitant]
     Active Substance: CETIRIZINE HYDROCHLORIDE
     Indication: SEASONAL ALLERGY
     Dosage: PRN
     Route: 065
  2. CLOBETASOL PROPIONATE. [Suspect]
     Active Substance: CLOBETASOL PROPIONATE
     Indication: PSORIASIS
     Dosage: 2 DROPS TO A LINE, 3 TIMES WEEKLY
     Route: 061
     Dates: start: 201810

REACTIONS (3)
  - Alopecia [Unknown]
  - Incorrect product administration duration [Unknown]
  - Product administered to patient of inappropriate age [Unknown]

NARRATIVE: CASE EVENT DATE: 201810
